FAERS Safety Report 22354781 (Version 1)
Quarter: 2023Q2

REPORT INFORMATION
  Report Type: Spontaneous
  Country: US (occurrence: US)
  Receive Date: 20230523
  Receipt Date: 20230523
  Transmission Date: 20230721
  Serious: Yes (Other)
  Sender: FDA-Public Use
  Company Number: US-002147023-NVSC2023US115241

PATIENT

DRUGS (2)
  1. PIQRAY [Suspect]
     Active Substance: ALPELISIB
     Indication: Product used for unknown indication
     Dosage: 200 MG, QD
     Route: 048
     Dates: start: 20230516, end: 20230516
  2. PIQRAY [Suspect]
     Active Substance: ALPELISIB
     Dosage: UNK (NOT SURE OF THE DOSE)
     Route: 048

REACTIONS (1)
  - Myocardial infarction [Recovered/Resolved]
